FAERS Safety Report 7298630-5 (Version None)
Quarter: 2011Q1

REPORT INFORMATION
  Report Type: 
  Country: None (occurrence: None)
  Receive Date: 20110217
  Receipt Date: 20110209
  Transmission Date: 20110831
  Serious: Yes (Hospitalization)
  Sender: FDA-Public Use
  Company Number: US-US-EMD SERONO, INC.-7041473

PATIENT
  Sex: Female

DRUGS (1)
  1. REBIF [Suspect]
     Indication: PRODUCT USED FOR UNKNOWN INDICATION
     Dates: start: 20100810, end: 20110101

REACTIONS (4)
  - FLUID INTAKE REDUCED [None]
  - EATING DISORDER [None]
  - HYPERSOMNIA [None]
  - INFLUENZA LIKE ILLNESS [None]
